FAERS Safety Report 5068522-0 (Version None)
Quarter: 2006Q3

REPORT INFORMATION
  Report Type: 
  Country: None (occurrence: None)
  Receive Date: 20060802
  Receipt Date: 20051107
  Transmission Date: 20061208
  Serious: No
  Sender: FDA-Public Use
  Company Number: US-BRISTOL-MYERS SQUIBB COMPANY-13171236

PATIENT
  Age: 82 Year
  Sex: Male

DRUGS (5)
  1. COUMADIN [Suspect]
     Indication: MYOCARDIAL INFARCTION
  2. COUMADIN [Suspect]
     Indication: CEREBROVASCULAR ACCIDENT
  3. LIPITOR [Concomitant]
  4. NIACIN [Concomitant]
  5. ENALAPRIL MALEATE [Concomitant]

REACTIONS (1)
  - INTERNATIONAL NORMALISED RATIO DECREASED [None]
